FAERS Safety Report 11602357 (Version 1)
Quarter: 2015Q4

REPORT INFORMATION
  Report Type: Spontaneous
  Country: US (occurrence: US)
  Receive Date: 20151006
  Receipt Date: 20151006
  Transmission Date: 20160304
  Serious: No
  Sender: FDA-Public Use
  Company Number: US-AMGEN-USASP2015060198

PATIENT
  Age: 70 Year
  Sex: Female

DRUGS (1)
  1. PROLIA [Suspect]
     Active Substance: DENOSUMAB
     Indication: OSTEOPOROSIS
     Dosage: UNK
     Route: 065

REACTIONS (8)
  - Joint crepitation [Unknown]
  - Tooth disorder [Unknown]
  - Limb discomfort [Unknown]
  - Ligament injury [Unknown]
  - Joint swelling [Unknown]
  - Arthritis [Unknown]
  - Asthma [Unknown]
  - Pain in extremity [Unknown]
